FAERS Safety Report 7572369-0 (Version None)
Quarter: 2011Q2

REPORT INFORMATION
  Report Type: 
  Country: None (occurrence: None)
  Receive Date: 20110624
  Receipt Date: 20110620
  Transmission Date: 20111010
  Serious: Yes (Death, Other)
  Sender: FDA-Public Use
  Company Number: PHHY2011MX41920

PATIENT
  Sex: Male

DRUGS (2)
  1. ANTICOAGULANTS [Concomitant]
  2. DIOVAN [Suspect]
     Indication: HYPERTENSION
     Dosage: 160 MG, 1 TABLET PER DAY
     Dates: start: 20100401, end: 20101118

REACTIONS (7)
  - RESPIRATORY FAILURE [None]
  - THROMBOSIS [None]
  - FALL [None]
  - RESPIRATORY ARREST [None]
  - CARDIAC FAILURE [None]
  - RIB FRACTURE [None]
  - HEART VALVE INCOMPETENCE [None]
